FAERS Safety Report 16457973 (Version 1)
Quarter: 2019Q2

REPORT INFORMATION
  Report Type: Spontaneous
  Country: US (occurrence: US)
  Receive Date: 20190620
  Receipt Date: 20190620
  Transmission Date: 20190711
  Serious: No
  Sender: FDA-Public Use
  Company Number: US-PFIZER INC-2019258395

PATIENT
  Sex: Male

DRUGS (1)
  1. CHANTIX [Suspect]
     Active Substance: VARENICLINE TARTRATE
     Dosage: CHANTIX PILL AT 1:00 IN THE MORNING AND ANOTHER AT 7:00 IN THE MORNING

REACTIONS (3)
  - Intentional product misuse [Unknown]
  - Abdominal discomfort [Unknown]
  - Therapeutic product effect incomplete [Unknown]
